FAERS Safety Report 19507394 (Version 1)
Quarter: 2021Q3

REPORT INFORMATION
  Report Type: Spontaneous
  Country: DE (occurrence: DE)
  Receive Date: 20210708
  Receipt Date: 20210708
  Transmission Date: 20211014
  Serious: Yes (Hospitalization, Other)
  Sender: FDA-Public Use
  Company Number: DE-TEVA-2021-DE-1929519

PATIENT
  Age: 86 Year
  Sex: Female

DRUGS (12)
  1. SPIRONOLACTONE. [Suspect]
     Active Substance: SPIRONOLACTONE
     Dosage: 25 MILLIGRAM DAILY; 1?0?0?0
     Route: 048
  2. NEBIVOLOL. [Concomitant]
     Active Substance: NEBIVOLOL
     Dosage: 2.5 MG, 1?1?0?0,UNIT DOSE:5MILLIGRAM
     Route: 048
  3. EISEN(II)?SULFAT [Concomitant]
     Dosage: 100 MILLIGRAM DAILY; 1?0?0?0
     Route: 048
  4. PHENPROCOUMON [Concomitant]
     Active Substance: PHENPROCOUMON
     Dosage: 3 MG, ACCORDING TO INR
     Route: 048
  5. AMLODIPIN [Concomitant]
     Active Substance: AMLODIPINE BESYLATE
     Dosage: 10 MILLIGRAM DAILY; 1?0?0?0
     Route: 048
  6. MOXONIDIN [Concomitant]
     Active Substance: MOXONIDINE
     Dosage: .4 MILLIGRAM DAILY; 1?0?1?0
     Route: 048
  7. RISPERIDON [Concomitant]
     Active Substance: RISPERIDONE
     Dosage: 0.25 MG, 0?0?1?2:UNIT DOSE:3DOSAGEFORM
     Route: 048
  8. TORASEMIDE [Suspect]
     Active Substance: TORSEMIDE
     Dosage: 10 MG, 2?2?0?0:UNIT DOSE:40MILLIGRAM
     Route: 048
  9. URAPIDIL [Concomitant]
     Active Substance: URAPIDIL
     Dosage: 120 MILLIGRAM DAILY; 1?0?1?0
     Route: 048
  10. CANDESARTAN. [Concomitant]
     Active Substance: CANDESARTAN
     Dosage: 8 MG, 2?0?2?0, UNIT DOSE:16MILLIGRAM
     Route: 048
  11. XIPAMID [Suspect]
     Active Substance: XIPAMIDE
     Dosage: 5 MILLIGRAM DAILY; 10 MG,  0.5?0?0?0
     Route: 048
  12. ALLOPURINOL. [Concomitant]
     Active Substance: ALLOPURINOL
     Dosage: 100 MILLIGRAM DAILY;  0?0?1?0
     Route: 048

REACTIONS (2)
  - Renal impairment [Unknown]
  - Medication error [Unknown]

NARRATIVE: CASE EVENT DATE: 20210428
